FAERS Safety Report 6536527-6 (Version None)
Quarter: 2010Q1

REPORT INFORMATION
  Report Type: 
  Country: None (occurrence: None)
  Receive Date: 20100105
  Receipt Date: 20090821
  Transmission Date: 20100710
  Serious: Yes (Hospitalization)
  Sender: FDA-Public Use
  Company Number: MSTR-NO-0905S-0099

PATIENT
  Age: 77 Year
  Sex: Male
  Weight: 70 kg

DRUGS (2)
  1. METASTRON [Suspect]
     Indication: METASTATIC PAIN
     Dosage: 140 MBQ, SINGLE DOSE, I.V.; SINGLE DOSE, I.V.
     Route: 042
     Dates: start: 20080415, end: 20080415
  2. METASTRON [Suspect]
     Indication: METASTATIC PAIN
     Dosage: 140 MBQ, SINGLE DOSE, I.V.; SINGLE DOSE, I.V.
     Route: 042
     Dates: start: 20080613, end: 20080613

REACTIONS (9)
  - CONDITION AGGRAVATED [None]
  - DECREASED APPETITE [None]
  - DIARRHOEA [None]
  - GASTRITIS [None]
  - HEADACHE [None]
  - OESOPHAGEAL CANDIDIASIS [None]
  - PAIN [None]
  - PLATELET COUNT DECREASED [None]
  - URINARY TRACT INFECTION [None]
